FAERS Safety Report 22843357 (Version 4)
Quarter: 2023Q4

REPORT INFORMATION
  Report Type: Report from Study
  Country: US (occurrence: US)
  Receive Date: 20230821
  Receipt Date: 20231121
  Transmission Date: 20240109
  Serious: No
  Sender: FDA-Public Use
  Company Number: US-002147023-NVSC2023US181186

PATIENT
  Age: 21 Year
  Sex: Female

DRUGS (1)
  1. KESIMPTA [Suspect]
     Active Substance: OFATUMUMAB
     Indication: Relapsing multiple sclerosis
     Dosage: 20 MG, QW
     Route: 058
     Dates: start: 20230807

REACTIONS (9)
  - Road traffic accident [Not Recovered/Not Resolved]
  - Nausea [Not Recovered/Not Resolved]
  - Dizziness [Not Recovered/Not Resolved]
  - Chills [Recovered/Resolved]
  - Contusion [Unknown]
  - Arthralgia [Unknown]
  - Malaise [Unknown]
  - Dysstasia [Unknown]
  - Feeling hot [Unknown]

NARRATIVE: CASE EVENT DATE: 20230807
